FAERS Safety Report 9777503 (Version 2)
Quarter: 2014Q1

REPORT INFORMATION
  Report Type: Spontaneous
  Country: US (occurrence: US)
  Receive Date: 20131222
  Receipt Date: 20140203
  Transmission Date: 20141002
  Serious: No
  Sender: FDA-Public Use
  Company Number: US-009507513-1312USA007813

PATIENT
  Age: 59 Year
  Sex: Male
  Weight: 136.5 kg

DRUGS (9)
  1. PROVENTIL [Suspect]
     Dosage: UNK; STARTED BEFORE 2011
     Route: 055
  2. PRILOSEC [Concomitant]
     Dosage: UNK
  3. LIPITOR [Concomitant]
     Dosage: UNK
  4. WARFARIN SODIUM [Concomitant]
     Dosage: UNK
  5. GLIMEPIRIDE [Concomitant]
     Dosage: UNK
  6. METFORMIN [Concomitant]
     Dosage: UNK
  7. LISINOPRIL [Concomitant]
     Dosage: UNK
  8. DAPSONE [Concomitant]
     Dosage: UNK
  9. VIAGRA [Concomitant]
     Dosage: UNK

REACTIONS (2)
  - Rash macular [Recovered/Resolved]
  - Acne [Recovered/Resolved]
